FAERS Safety Report 8392612-8 (Version None)
Quarter: 2012Q1

REPORT INFORMATION
  Report Type: 
  Country: None (occurrence: None)
  Receive Date: 20120323
  Receipt Date: 20110331
  Transmission Date: 20120608
  Serious: Yes (Other)
  Sender: FDA-Public Use
  Company Number: 163-21880-11032321

PATIENT
  Age: 81 Year
  Sex: Male

DRUGS (4)
  1. REVLIMID [Suspect]
     Indication: LYMPHOMA
     Dosage: 10 MG, DAILY X 21 DAYS, PO
     Route: 048
     Dates: start: 20110121
  2. LEVOTHYROXINE SODIUM (LEVOTHYROXINE SODIUM)(UNKNOWN) [Concomitant]
  3. DEXAMETHASONE [Concomitant]
  4. METOPROLOL TARTRATE (METOPROLOL TARTRATE)(UNKNOWN) [Concomitant]

REACTIONS (2)
  - STAPHYLOCOCCAL INFECTION [None]
  - STREPTOCOCCAL INFECTION [None]
